FAERS Safety Report 15544479 (Version 1)
Quarter: 2018Q4

REPORT INFORMATION
  Report Type: Report from Study
  Country: None (occurrence: BR)
  Receive Date: 20181024
  Receipt Date: 20181024
  Transmission Date: 20190205
  Serious: Yes (Hospitalization, Other)
  Sender: FDA-Public Use
  Company Number: BR-ABBVIE-18K-020-2525057-00

PATIENT
  Age: 61 Year
  Sex: Female
  Weight: 68 kg

DRUGS (8)
  1. AMITRIPTYLINE [Concomitant]
     Active Substance: AMITRIPTYLINE
     Indication: PAIN
  2. HUMIRA [Suspect]
     Active Substance: ADALIMUMAB
     Indication: RHEUMATOID ARTHRITIS
     Route: 058
     Dates: start: 20080101, end: 201705
  3. HUMIRA [Suspect]
     Active Substance: ADALIMUMAB
     Dosage: AROUND 15-OCT-2018
     Route: 058
     Dates: start: 201810
  4. LOSARTAN. [Concomitant]
     Active Substance: LOSARTAN
     Indication: HYPERTENSION
  5. AMITRIPTYLINE [Concomitant]
     Active Substance: AMITRIPTYLINE
     Indication: SLEEP DISORDER THERAPY
  6. FUROSEMIDE. [Concomitant]
     Active Substance: FUROSEMIDE
     Indication: POLYURIA
  7. PREDNISONE (NON-ABBVIE) [Concomitant]
     Indication: ARTHRITIS
  8. ALPRAZOLAM. [Concomitant]
     Active Substance: ALPRAZOLAM
     Indication: SEDATIVE THERAPY

REACTIONS (15)
  - Hospitalisation [Unknown]
  - Blood cholesterol abnormal [Not Recovered/Not Resolved]
  - Lung disorder [Unknown]
  - Dysphonia [Recovering/Resolving]
  - Weight decreased [Recovering/Resolving]
  - Unevaluable event [Unknown]
  - Acute pulmonary oedema [Recovering/Resolving]
  - Myocardial infarction [Not Recovered/Not Resolved]
  - Anal haemorrhage [Unknown]
  - Pneumonia [Recovered/Resolved]
  - Diabetes mellitus [Not Recovered/Not Resolved]
  - Pneumonia [Recovered/Resolved]
  - Venous occlusion [Unknown]
  - Lung neoplasm [Recovered/Resolved]
  - Arthralgia [Not Recovered/Not Resolved]

NARRATIVE: CASE EVENT DATE: 201707
